FAERS Safety Report 7054146-2 (Version None)
Quarter: 2010Q4

REPORT INFORMATION
  Report Type: 
  Country: None (occurrence: None)
  Receive Date: 20101015
  Receipt Date: 20100929
  Transmission Date: 20110411
  Serious: Yes (Hospitalization)
  Sender: FDA-Public Use
  Company Number: 011364

PATIENT
  Age: 38 Year
  Sex: Male

DRUGS (11)
  1. BUSULFEX [Suspect]
     Indication: STEM CELL TRANSPLANT
     Dosage: 230.825 MG, DAILY DOSE, INTRAVENOUS
     Route: 042
     Dates: start: 20100729, end: 20100730
  2. ETOPOSIDE [Concomitant]
  3. CYTARABINE [Concomitant]
  4. MELPHALAN HYDROCHLORIDE [Concomitant]
  5. CEFAZOLIN SODIUM [Concomitant]
  6. CITOPCIN (CIPROFLOXACIN HYDROCHLORIDE) [Concomitant]
  7. MICAFUNGIN SODIUM (MICAFUNGIN SODIUM) [Concomitant]
  8. NEURONTIN [Concomitant]
  9. SELENASE (SELENIDE SODIUM) [Concomitant]
  10. TRENTAL [Concomitant]
  11. ZOVIRAX [Concomitant]

REACTIONS (1)
  - NEUROPATHY PERIPHERAL [None]
